FAERS Safety Report 6893230-0 (Version None)
Quarter: 2010Q3

REPORT INFORMATION
  Report Type: 
  Country: None (occurrence: None)
  Receive Date: 20100731
  Receipt Date: 20090710
  Transmission Date: 20110219
  Serious: No
  Sender: FDA-Public Use
  Company Number: US-PFIZER INC-2009203744

PATIENT

DRUGS (2)
  1. NEURONTIN [Suspect]
     Indication: CARPAL TUNNEL SYNDROME
     Dosage: 900 MG/DAY
  2. NEURONTIN [Suspect]
     Indication: NEURALGIA

REACTIONS (1)
  - DROOLING [None]
